FAERS Safety Report 5027378-2 (Version None)
Quarter: 2006Q2

REPORT INFORMATION
  Report Type: 
  Country: None (occurrence: None)
  Receive Date: 20060612
  Receipt Date: 20060526
  Transmission Date: 20061013
  Serious: Yes (Death, Hospitalization)
  Sender: FDA-Public Use
  Company Number: 2006PL000017

PATIENT
  Age: 71 Year
  Sex: Female

DRUGS (14)
  1. MERCAPTOPURINE [Suspect]
     Indication: CROHN'S DISEASE
     Dosage: PO
     Route: 048
  2. REMICADE [Suspect]
     Indication: CROHN'S DISEASE
     Dosage: Q8W; IV
     Route: 042
  3. MESALAMINE [Concomitant]
  4. PANTOPRAZOLE [Concomitant]
  5. LOSARTAN [Concomitant]
  6. HYDROCHLOROTHIAZIDE [Concomitant]
  7. LOPERAMIDE [Concomitant]
  8. ZOLPIDEM TARTRATE [Concomitant]
  9. INSULIN [Concomitant]
  10. CEFOXITIN [Concomitant]
  11. VANCOMYCIN [Concomitant]
  12. DEXAMETHASONE TAB [Concomitant]
  13. ONDANSETRON HCL [Concomitant]
  14. VITAMIN B-12 [Concomitant]

REACTIONS (19)
  - ANGER [None]
  - ASTHENIA [None]
  - BRAIN MASS [None]
  - COORDINATION ABNORMAL [None]
  - CREPITATIONS [None]
  - DEPRESSION [None]
  - DIFFUSE LARGE B-CELL LYMPHOMA [None]
  - EPSTEIN-BARR VIRUS TEST POSITIVE [None]
  - FACIAL PALSY [None]
  - GAIT DISTURBANCE [None]
  - GENERAL PHYSICAL HEALTH DETERIORATION [None]
  - GRAND MAL CONVULSION [None]
  - IMMUNOSUPPRESSION [None]
  - MYOCARDIAL INFARCTION [None]
  - NAUSEA [None]
  - NERVOUS SYSTEM DISORDER [None]
  - OBSTRUCTION [None]
  - REFUSAL OF TREATMENT BY RELATIVE [None]
  - VISION BLURRED [None]
